FAERS Safety Report 17423642 (Version 3)
Quarter: 2020Q1

REPORT INFORMATION
  Report Type: Report from Study
  Country: PL (occurrence: PL)
  Receive Date: 20200217
  Receipt Date: 20200316
  Transmission Date: 20200409
  Serious: Yes (Death)
  Sender: FDA-Public Use
  Company Number: PL-ROCHE-2550139

PATIENT
  Age: 69 Year
  Sex: Female
  Weight: 69 kg

DRUGS (2)
  1. NAB-PACLITAXEL [Suspect]
     Active Substance: PACLITAXEL
     Indication: TRIPLE NEGATIVE BREAST CANCER
     Dosage: ON DAYS 1, 8, AND 15 OF EVERY 28-DAY CYCLE?DATE OF MOST RECENT DOSE OF PACLITAXEL ALBUMIN PRIOR TO E
     Route: 042
     Dates: start: 20200115
  2. ATEZOLIZUMAB. [Suspect]
     Active Substance: ATEZOLIZUMAB
     Indication: TRIPLE NEGATIVE BREAST CANCER
     Dosage: ON DAYS 1, 8 AND 15 OF EVERY 28-DAY CYCLE?DATE OF MOST RECENT DOSE OF ATEZOLIZUMAB (840 MG) PRIOR TO
     Route: 041
     Dates: start: 20200115

REACTIONS (1)
  - Pulmonary oedema [Fatal]

NARRATIVE: CASE EVENT DATE: 20200210
